FAERS Safety Report 7949726-3 (Version None)
Quarter: 2011Q4

REPORT INFORMATION
  Report Type: 
  Country: None (occurrence: None)
  Receive Date: 20111130
  Receipt Date: 20111122
  Transmission Date: 20120403
  Serious: Yes (Other)
  Sender: FDA-Public Use
  Company Number: JP-PFIZER INC-2006144778

PATIENT
  Sex: Male

DRUGS (1)
  1. VIAGRA [Suspect]
     Dosage: 2 OR 3 TIMES A MONTH
     Route: 048
     Dates: end: 20060101

REACTIONS (2)
  - DUODENAL ULCER [None]
  - LYMPHOMA [None]
